FAERS Safety Report 9043961 (Version 1)
Quarter: 2013Q1

REPORT INFORMATION
  Report Type: Report from Study
  Country: US (occurrence: US)
  Receive Date: 20130130
  Receipt Date: 20130130
  Transmission Date: 20140127
  Serious: No
  Sender: FDA-Public Use
  Company Number: US-ABBOTT-12P-163-0949409-00

PATIENT
  Age: 67 Year
  Sex: Male

DRUGS (10)
  1. HUMIRA 40 MG/0.8 ML PEN [Suspect]
     Indication: CROHN^S DISEASE
     Dates: start: 20120313
  2. INSULIN [Concomitant]
     Indication: DIABETES MELLITUS
     Dosage: 70/30 DAILY
  3. ALLOPURINOL [Concomitant]
     Indication: GOUT
  4. HCTZ [Concomitant]
     Indication: BLOOD PRESSURE
  5. LISINOPRIL [Concomitant]
     Indication: BLOOD PRESSURE
  6. METOPROLOL [Concomitant]
     Indication: BLOOD PRESSURE
  7. IRON SUPPLEMENT [Concomitant]
     Indication: PRODUCT USED FOR UNKNOWN INDICATION
  8. LOW DOSE ASA [Concomitant]
     Indication: PRODUCT USED FOR UNKNOWN INDICATION
     Dosage: QD
  9. INTESTINAL SMOOTHE OTC [Concomitant]
     Indication: GASTRIC DISORDER
     Dosage: QD
  10. VITAMIN C [Concomitant]
     Indication: PRODUCT USED FOR UNKNOWN INDICATION
     Dosage: DAILY IN WINTER

REACTIONS (10)
  - Feeling hot [Not Recovered/Not Resolved]
  - Hypoaesthesia [Not Recovered/Not Resolved]
  - Paraesthesia [Not Recovered/Not Resolved]
  - Arthralgia [Not Recovered/Not Resolved]
  - Myalgia [Not Recovered/Not Resolved]
  - Asthenia [Not Recovered/Not Resolved]
  - Oedema peripheral [Not Recovered/Not Resolved]
  - Injection site erythema [Not Recovered/Not Resolved]
  - Injection site pruritus [Not Recovered/Not Resolved]
  - Vitamin B12 decreased [Not Recovered/Not Resolved]
